FAERS Safety Report 18898335 (Version 2)
Quarter: 2021Q1

REPORT INFORMATION
  Report Type: Report from Study
  Country: AR (occurrence: AR)
  Receive Date: 20210216
  Receipt Date: 20210310
  Transmission Date: 20210420
  Serious: Yes (Death, Other)
  Sender: FDA-Public Use
  Company Number: AR-INCYTE CORPORATION-2021IN001013

PATIENT

DRUGS (1)
  1. JAKAVI [Suspect]
     Active Substance: RUXOLITINIB
     Indication: MYELOFIBROSIS
     Dosage: 5 MG, BID
     Route: 048
     Dates: start: 20110101

REACTIONS (2)
  - Cardiac arrest [Fatal]
  - Pneumonia [Unknown]

NARRATIVE: CASE EVENT DATE: 20210130
